FAERS Safety Report 12770177 (Version 6)
Quarter: 2018Q1

REPORT INFORMATION
  Report Type: Spontaneous
  Country: US (occurrence: US)
  Receive Date: 20160922
  Receipt Date: 20180207
  Transmission Date: 20180508
  Serious: Yes (Other)
  Sender: FDA-Public Use
  Company Number: US-PFIZER INC-2016394840

PATIENT
  Age: 53 Year
  Sex: Male

DRUGS (2)
  1. XELJANZ [Suspect]
     Active Substance: TOFACITINIB CITRATE
     Indication: RHEUMATOID ARTHRITIS
     Dosage: 10 MG, 1X/DAY (TWO 5 MG TABLETS AT SAME TIME ONCE A DAY)
     Route: 048
  2. XELJANZ [Suspect]
     Active Substance: TOFACITINIB CITRATE
     Dosage: 5 MG, 2X/DAY
     Route: 048

REACTIONS (6)
  - Drug dose omission [Unknown]
  - Vision blurred [Unknown]
  - Tunnel vision [Unknown]
  - Product use issue [Unknown]
  - Nasal congestion [Unknown]
  - Pain [Unknown]

NARRATIVE: CASE EVENT DATE: 20160818
